FAERS Safety Report 4303411-8 (Version None)
Quarter: 2004Q1

REPORT INFORMATION
  Report Type: 
  Country: None (occurrence: None)
  Receive Date: 20040223
  Receipt Date: 20040213
  Transmission Date: 20041129
  Serious: Yes (Hospitalization)
  Sender: FDA-Public Use
  Company Number: 2004195147DE

PATIENT
  Age: 60 Year
  Sex: Female
  Weight: 73 kg

DRUGS (8)
  1. COMPARATOR-DOCETAXEL (COMPARATOR-DOCETAXEL) INJECTION [Suspect]
     Indication: BREAST CANCER
     Dosage: 75 MG/M2, DAILY, CYCLIC, IV
     Route: 042
     Dates: start: 20031230
  2. COMPARATOR - DEXAMETHASONE (DEXAMETHASONE) INJECTION [Suspect]
     Dosage: 8MG, IV, IV
     Route: 042
     Dates: start: 20031229, end: 20031231
  3. COMPARATOR - DEXAMETHASONE (DEXAMETHASONE, DEXAMETHASONE) TABLET [Suspect]
     Dosage: 8 MG, ORAL, ORAL
     Route: 048
     Dates: start: 20031229, end: 20031231
  4. KEVATRIL (GRANISETRON HYDROCHLORIDE) [Suspect]
     Dosage: 3 MG, QD, IV
     Route: 042
     Dates: start: 20031230
  5. METOCLOPRAMIDE HYDROCHLORIDE [Suspect]
     Dosage: 40 MG, QID, ORAL
     Route: 048
     Dates: start: 20031230, end: 20040102
  6. PANTOZOL (PANTOPRAZOLE SODIUM) [Concomitant]
  7. IMAP (FLUSPIRILENE) [Concomitant]
  8. BEGODURAL [Concomitant]

REACTIONS (6)
  - ARTHRALGIA [None]
  - MYALGIA [None]
  - NASOPHARYNGITIS [None]
  - OEDEMA PERIPHERAL [None]
  - RHEUMATOID ARTHRITIS [None]
  - THROMBOPHLEBITIS [None]
